FAERS Safety Report 23830922 (Version 2)
Quarter: 2024Q2

REPORT INFORMATION
  Report Type: Spontaneous
  Country: CZ (occurrence: CZ)
  Receive Date: 20240508
  Receipt Date: 20240606
  Transmission Date: 20240716
  Serious: Yes (Hospitalization, Other)
  Sender: FDA-Public Use
  Company Number: None

PATIENT
  Age: 32 Year
  Sex: Female
  Weight: 86 kg

DRUGS (9)
  1. BRAFTOVI [Suspect]
     Active Substance: ENCORAFENIB
     Indication: Brain neoplasm
     Dosage: 450 MG, QD (1/DAY) (75 MG CAPSULES 0 - 0 - 6, STOPPED FOR THE TIME BEING. FOLLOWING A 2 WEEK BREAK,
     Route: 048
     Dates: start: 20231215, end: 20240419
  2. BRAFTOVI [Suspect]
     Active Substance: ENCORAFENIB
     Dosage: 300 MG, QD (1/DAY) (75MG 1CPS 4-0-0)
     Route: 048
     Dates: start: 20240429
  3. MEKTOVI [Suspect]
     Active Substance: BINIMETINIB
     Indication: Brain neoplasm
     Dosage: 45 MG, BID (2/DAY) (5 MG TABLETS (3 - 0 - 3) EVERY 12 HOURSSTOPPED FOR THE TIME BEING. FOLLOWING A 2
     Route: 048
     Dates: start: 20231215, end: 20240419
  4. MEKTOVI [Suspect]
     Active Substance: BINIMETINIB
     Dosage: 30 MG, BID (2/DAY) (15 MG 2-0-2)
     Route: 048
     Dates: start: 20240429
  5. EUTHYROX [Concomitant]
     Active Substance: LEVOTHYROXINE SODIUM
     Dosage: 50 UG (1-0-0 ON AN EMPTY STOMACH)
     Route: 065
  6. SERTRALINE HYDROCHLORIDE [Concomitant]
     Active Substance: SERTRALINE HYDROCHLORIDE
     Dosage: 50 MG (1-0-1)
     Route: 065
  7. LAMICTAL [Concomitant]
     Active Substance: LAMOTRIGINE
     Dosage: 200 MG (2-0-2 (100MG TABLETS)
     Route: 065
  8. LAMICTAL [Concomitant]
     Active Substance: LAMOTRIGINE
     Dosage: 50 MG (1-0-1)
     Route: 065
  9. FUROSEMIDE [Concomitant]
     Active Substance: FUROSEMIDE
     Dosage: 40 MG (1-0-0)
     Route: 065

REACTIONS (6)
  - Skin mass [Recovering/Resolving]
  - Rash [Recovering/Resolving]
  - Epilepsy [Recovered/Resolved]
  - Headache [Recovered/Resolved]
  - Body temperature increased [Recovered/Resolved]
  - Off label use [Unknown]

NARRATIVE: CASE EVENT DATE: 20231215
